FAERS Safety Report 6645283-2 (Version None)
Quarter: 2010Q1

REPORT INFORMATION
  Report Type: 
  Country: None (occurrence: None)
  Receive Date: 20100319
  Receipt Date: 20100319
  Transmission Date: 20100710
  Serious: Yes (Life-Threatening)
  Sender: FDA-Public Use
  Company Number: None

PATIENT
  Sex: Female
  Weight: 58.97 kg

DRUGS (1)
  1. MORPHINE [Suspect]
     Indication: PAIN
     Dosage: 2MG ONCE IV BOLUS
     Route: 040
     Dates: start: 20100316, end: 20100316

REACTIONS (2)
  - CYANOSIS [None]
  - RESPIRATORY ARREST [None]
